FAERS Safety Report 5754476-8 (Version None)
Quarter: 2008Q2

REPORT INFORMATION
  Report Type: 
  Country: None (occurrence: None)
  Receive Date: 20080530
  Receipt Date: 20080528
  Transmission Date: 20081010
  Serious: Yes (Hospitalization)
  Sender: FDA-Public Use
  Company Number: JP-BOEHRINGER INGELHEIM GMBH, GERMANY-2008-BP-07479NB

PATIENT
  Sex: Male
  Weight: 68 kg

DRUGS (6)
  1. MICARDIS [Suspect]
     Indication: HYPERTENSION
     Route: 048
     Dates: start: 20060920, end: 20070429
  2. ALDACTONE [Concomitant]
     Indication: HYPERTENSION
     Route: 048
     Dates: end: 20070429
  3. ASPIRIN [Concomitant]
     Indication: PROPHYLAXIS
     Route: 048
     Dates: start: 20060920
  4. LASIX [Concomitant]
     Route: 048
     Dates: start: 20060920, end: 20070429
  5. SPIRIVA [Concomitant]
     Route: 055
     Dates: start: 20060927, end: 20070429
  6. HOKUNALIN: TAPE [Concomitant]
     Route: 062
     Dates: start: 20060927

REACTIONS (3)
  - CHOLECYSTITIS ACUTE [None]
  - ILEUS [None]
  - ORAL INTAKE REDUCED [None]
